FAERS Safety Report 9298247 (Version 2)
Quarter: 2013Q2

REPORT INFORMATION
  Report Type: Spontaneous
  Country: BR (occurrence: BR)
  Receive Date: 20130520
  Receipt Date: 20130523
  Transmission Date: 20140414
  Serious: Yes (Death)
  Sender: FDA-Public Use
  Company Number: BR-SANOFI-AVENTIS-2013SA048669

PATIENT
  Sex: Female

DRUGS (8)
  1. LANTUS [Suspect]
     Indication: PRODUCT USED FOR UNKNOWN INDICATION
     Route: 058
  2. LASIX [Concomitant]
  3. SIMVASTATIN [Concomitant]
  4. GLIMEPIRIDE/METFORMIN HYDROCHLORIDE [Concomitant]
  5. CARVEDILOL [Concomitant]
  6. AMLODIPINE [Concomitant]
  7. METFORMIN [Concomitant]
  8. LOSARTAN POTASSIUM [Concomitant]

REACTIONS (1)
  - Death [Fatal]
